FAERS Safety Report 8601591 (Version 2)
Quarter: 2013Q3

REPORT INFORMATION
  Report Type: Spontaneous
  Country: US (occurrence: US)
  Receive Date: 20120605
  Receipt Date: 20130827
  Transmission Date: 20140515
  Serious: Yes (Disabling, Other)
  Sender: FDA-Public Use
  Company Number: US-PFIZER INC-2012130880

PATIENT
  Age: 58 Year
  Sex: Male
  Weight: 113 kg

DRUGS (5)
  1. EMERGEN-C [Suspect]
     Indication: PYREXIA
     Dosage: UNK
     Dates: start: 1994
  2. EMERGEN-C [Suspect]
     Indication: PAIN
  3. EMERGEN-C [Suspect]
     Indication: ASTHENIA
  4. SPIRONOLACTONE [Suspect]
     Indication: FLUID RETENTION
     Dosage: 100 MG, UNK
     Route: 048
     Dates: end: 20120529
  5. POTASSIUM CHLORIDE [Suspect]
     Indication: FLUID RETENTION
     Dosage: 20 MEQ, UNK
     Dates: end: 20120529

REACTIONS (6)
  - Hepatic cirrhosis [Recovering/Resolving]
  - Impaired work ability [Unknown]
  - Nephrolithiasis [Recovering/Resolving]
  - Liver disorder [Unknown]
  - Hypotension [Unknown]
  - Fatigue [Unknown]
